FAERS Safety Report 16079070 (Version 4)
Quarter: 2019Q3

REPORT INFORMATION
  Report Type: Report from Study
  Country: GB (occurrence: GB)
  Receive Date: 20190315
  Receipt Date: 20190807
  Transmission Date: 20191004
  Serious: Yes (Hospitalization, Other)
  Sender: FDA-Public Use
  Company Number: GB-PURDUE PHARMA-GBR-2019-0065019

PATIENT
  Age: 73 Year
  Sex: Male

DRUGS (4)
  1. MORPHINE SULFATE. [Suspect]
     Active Substance: MORPHINE SULFATE
     Indication: PRODUCT USED FOR UNKNOWN INDICATION
     Dosage: UNK
     Route: 065
  2. SPIRONOLACTONE. [Suspect]
     Active Substance: SPIRONOLACTONE
     Indication: BLOOD PRESSURE INCREASED
  3. SANDOSTATIN [Suspect]
     Active Substance: OCTREOTIDE ACETATE
     Indication: NEUROENDOCRINE TUMOUR
     Dosage: 30 MG, MONTHLY (EVERY 4 WEEKS)
     Route: 030
     Dates: start: 20181005
  4. SPIRONOLACTONE. [Suspect]
     Active Substance: SPIRONOLACTONE
     Indication: JOINT SWELLING
     Route: 065

REACTIONS (20)
  - C-reactive protein increased [Unknown]
  - Embolism [Unknown]
  - Rash [Unknown]
  - Gait disturbance [Unknown]
  - Skin mass [Unknown]
  - Blood pressure increased [Unknown]
  - Asthenia [Unknown]
  - Flatulence [Unknown]
  - Steatorrhoea [Unknown]
  - Liver function test increased [Recovering/Resolving]
  - Weight decreased [Unknown]
  - Malaise [Unknown]
  - Tricuspid valve incompetence [Unknown]
  - Nausea [Unknown]
  - Syncope [Unknown]
  - Diarrhoea [Unknown]
  - Delayed recovery from anaesthesia [Unknown]
  - Lethargy [Unknown]
  - Joint swelling [Unknown]
  - Dizziness [Unknown]

NARRATIVE: CASE EVENT DATE: 20190215
